FAERS Safety Report 13092565 (Version 2)
Quarter: 2021Q4

REPORT INFORMATION
  Report Type: Spontaneous
  Country: GB (occurrence: GB)
  Receive Date: 20170106
  Receipt Date: 20211202
  Transmission Date: 20220303
  Serious: Yes (Other)
  Sender: FDA-Public Use
  Company Number: None

PATIENT
  Age: 70 Year
  Sex: Female
  Weight: 72 kg

DRUGS (2)
  1. VAGIFEM [Suspect]
     Active Substance: ESTRADIOL
     Indication: Vulvovaginal dryness
     Dosage: 1 TAB, QD
     Route: 067
     Dates: end: 20161127
  2. VAGIFEM [Suspect]
     Active Substance: ESTRADIOL
     Dosage: 1 TAB, QW
     Route: 067
     Dates: end: 20161127

REACTIONS (3)
  - Malaise [Recovered/Resolved]
  - Feeling hot [Recovered/Resolved]
  - Insomnia [Recovered/Resolved]

NARRATIVE: CASE EVENT DATE: 20161127
